FAERS Safety Report 7403851-4 (Version None)
Quarter: 2011Q2

REPORT INFORMATION
  Report Type: 
  Country: None (occurrence: None)
  Receive Date: 20110408
  Receipt Date: 20110331
  Transmission Date: 20111010
  Serious: Yes (Hospitalization, Other)
  Sender: FDA-Public Use
  Company Number: US-AMGEN-USASP2011014935

PATIENT
  Age: 54 Year
  Sex: Female

DRUGS (1)
  1. ENBREL [Suspect]
     Indication: RHEUMATOID ARTHRITIS
     Dosage: 50 MG, QWK
     Dates: start: 20010101

REACTIONS (14)
  - ASTHMA [None]
  - BRONCHITIS [None]
  - INJECTION SITE WARMTH [None]
  - STAPHYLOCOCCAL INFECTION [None]
  - POST PROCEDURAL INFECTION [None]
  - COUGH [None]
  - OSTEOARTHRITIS [None]
  - FUNGAL INFECTION [None]
  - INJECTION SITE ERYTHEMA [None]
  - FEMUR FRACTURE [None]
  - INJECTION SITE PAIN [None]
  - FALL [None]
  - QUALITY OF LIFE DECREASED [None]
  - INJECTION SITE REACTION [None]
